FAERS Safety Report 6038904-9 (Version None)
Quarter: 2009Q1

REPORT INFORMATION
  Report Type: 
  Country: None (occurrence: None)
  Receive Date: 20090114
  Receipt Date: 20090114
  Transmission Date: 20090719
  Serious: Yes (Hospitalization)
  Sender: FDA-Public Use
  Company Number: None

PATIENT
  Sex: Male
  Weight: 79 kg

DRUGS (2)
  1. BEVACIZUMAB [Suspect]
     Indication: RENAL CELL CARCINOMA
     Dosage: 15 MG/KG Q 21 DAYS IV
     Route: 042
     Dates: start: 20081209
  2. BORTEZOMIB [Suspect]
     Indication: RENAL CELL CARCINOMA
     Dosage: 1.8 MG/M2 D1, D8 Q 21 DAYA IV
     Route: 042
     Dates: start: 20081209

REACTIONS (4)
  - CLOSTRIDIUM BACTERAEMIA [None]
  - FATIGUE [None]
  - HAEMOGLOBIN DECREASED [None]
  - HYPERCALCAEMIA [None]
